FAERS Safety Report 7600367-7 (Version None)
Quarter: 2011Q3

REPORT INFORMATION
  Report Type: 
  Country: None (occurrence: None)
  Receive Date: 20110711
  Receipt Date: 20110628
  Transmission Date: 20111222
  Serious: Yes (Hospitalization, Disabling)
  Sender: FDA-Public Use
  Company Number: US-ELI_LILLY_AND_COMPANY-US201106008782

PATIENT
  Sex: Female

DRUGS (12)
  1. CIPROFLOXACIN HCL [Concomitant]
     Dosage: UNK, UNKNOWN
     Route: 065
  2. PEPCID [Concomitant]
     Dosage: UNK, UNKNOWN
     Route: 065
  3. PENICILLIN [Concomitant]
     Dosage: UNK, UNKNOWN
     Route: 065
  4. PLAVIX [Concomitant]
     Dosage: UNK, UNKNOWN
     Route: 065
  5. METOPROLOL TARTRATE [Concomitant]
     Dosage: UNK, UNKNOWN
     Route: 065
  6. FORTEO [Suspect]
     Indication: OSTEOPOROSIS
     Dosage: 20 UG, QD
     Route: 065
     Dates: start: 20110328
  7. METANX [Concomitant]
     Dosage: UNK, UNKNOWN
     Route: 065
  8. ZOCOR [Concomitant]
     Dosage: UNK, UNKNOWN
     Route: 065
  9. ZOLOFT [Concomitant]
     Dosage: UNK, UNKNOWN
     Route: 065
  10. AUGMENTIN '125' [Concomitant]
     Dosage: UNK, UNKNOWN
     Route: 065
  11. VITAMIN D [Concomitant]
     Dosage: UNK, OTHER (ONCE A WEEK)
     Route: 065
  12. ROPINIROLE [Concomitant]
     Dosage: UNK, UNKNOWN
     Route: 065

REACTIONS (3)
  - FOOT FRACTURE [None]
  - STAPHYLOCOCCAL INFECTION [None]
  - ANKLE FRACTURE [None]
